FAERS Safety Report 7081987-8 (Version None)
Quarter: 2010Q4

REPORT INFORMATION
  Report Type: 
  Country: None (occurrence: None)
  Receive Date: 20101103
  Receipt Date: 20101027
  Transmission Date: 20110411
  Serious: Yes (Other)
  Sender: FDA-Public Use
  Company Number: US-PFIZER INC-2010136960

PATIENT
  Age: 58 Year
  Sex: Female
  Weight: 91 kg

DRUGS (10)
  1. BLINDED *NO SUBJECT DRUG [Suspect]
     Indication: RENAL CANCER
     Dosage: UNK
     Route: 048
     Dates: start: 20100816, end: 20100831
  2. BLINDED *PLACEBO [Suspect]
     Indication: RENAL CANCER
     Dosage: UNK
     Route: 048
     Dates: start: 20100816, end: 20100831
  3. BLINDED *SORAFENIB [Suspect]
     Indication: RENAL CANCER
     Dosage: UNK
     Route: 048
     Dates: start: 20100816, end: 20100831
  4. SUNITINIB MALATE [Suspect]
     Indication: RENAL CANCER
     Dosage: UNK
     Route: 048
     Dates: start: 20100816, end: 20100831
  5. LIPITOR [Suspect]
  6. ASPIRIN [Concomitant]
  7. BENICAR [Concomitant]
  8. ZIAC [Concomitant]
  9. LUTEIN [Concomitant]
  10. METFORMIN [Concomitant]

REACTIONS (15)
  - ACTIVITIES OF DAILY LIVING IMPAIRED [None]
  - ANXIETY [None]
  - COGNITIVE DISORDER [None]
  - CONFUSIONAL STATE [None]
  - DECREASED APPETITE [None]
  - DIZZINESS [None]
  - FATIGUE [None]
  - GAIT DISTURBANCE [None]
  - INSOMNIA [None]
  - MUSCULAR WEAKNESS [None]
  - NAUSEA [None]
  - PAIN [None]
  - PERIPHERAL MOTOR NEUROPATHY [None]
  - PERIPHERAL SENSORY NEUROPATHY [None]
  - VOMITING [None]
